FAERS Safety Report 7125923 (Version 3)
Quarter: 2012Q4

REPORT INFORMATION
  Report Type: Spontaneous
  Country: None (occurrence: None)
  Receive Date: 20090909
  Receipt Date: 20120820
  Transmission Date: 20130627
  Serious: Yes (Hospitalization, Other)
  Sender: FDA-Public Use
  Company Number: AUR-APL-2009-00506

PATIENT
  Age: 40 Year
  Sex: Male

DRUGS (13)
  1. MIRTAZAPINE [Suspect]
     Dosage: 15MG, DAILY, ORAL
     Route: 048
  2. RISPERIDONE [Suspect]
     Dosage: 15MG, DAILY, ORAL
     Route: 048
  3. DULOXETINE HYDROCHLORIDE [Suspect]
     Dosage: 60 MG
  4. ABILIFY [Suspect]
     Indication: SCHIZOAFFECTIVE DISORDER
     Dosage: 15 MG DAILY ORAL
     Route: 048
     Dates: start: 200810
  5. ABILIFY [Suspect]
     Dosage: 15 MG DAILY ORAL
     Route: 048
     Dates: start: 200810
  6. ABILIFY [Suspect]
     Indication: SCHIZOAFFECTIVE DISORDER
     Route: 048
     Dates: start: 200804
  7. ABILIFY [Suspect]
     Route: 048
     Dates: start: 200804
  8. QUETIAPINE [Suspect]
  9. VALPROATE SODIUM [Suspect]
  10. VENLAFAXINE [Suspect]
     Dosage: 225MG
  11. EFFEXOR [Concomitant]
  12. LITHIUM [Concomitant]
  13. DRUG USED IN DIABETES [Concomitant]

REACTIONS (10)
  - Metabolic syndrome [None]
  - Hepatic function abnormal [None]
  - Hypothyroidism [None]
  - Depression [None]
  - Extrapyramidal disorder [None]
  - Bipolar disorder [None]
  - Gamma-glutamyltransferase increased [None]
  - Weight increased [None]
  - Diabetes mellitus [None]
  - Blood alkaline phosphatase increased [None]
